FAERS Safety Report 13431802 (Version 2)
Quarter: 2017Q2

REPORT INFORMATION
  Report Type: Spontaneous
  Country: US (occurrence: US)
  Receive Date: 20170412
  Receipt Date: 20170424
  Transmission Date: 20170830
  Serious: Yes (Hospitalization)
  Sender: FDA-Public Use
  Company Number: US-JNJFOC-20170304237

PATIENT
  Age: 55 Year
  Sex: Female
  Weight: 115.6 kg

DRUGS (5)
  1. XARELTO [Suspect]
     Active Substance: RIVAROXABAN
     Indication: THROMBOSIS
     Dosage: INITIALLY 15 MG TWICE DAILY AND 20 MG ONCE DAILY
     Route: 048
     Dates: start: 20130322, end: 20140513
  2. XARELTO [Suspect]
     Active Substance: RIVAROXABAN
     Indication: ATRIAL FIBRILLATION
     Dosage: INITIALLY 15 MG TWICE DAILY AND 20 MG ONCE DAILY
     Route: 048
     Dates: start: 20130322, end: 20140513
  3. ASPIRIN. [Suspect]
     Active Substance: ASPIRIN
     Indication: PRODUCT USED FOR UNKNOWN INDICATION
     Route: 048
     Dates: end: 201405
  4. XARELTO [Suspect]
     Active Substance: RIVAROXABAN
     Indication: DEEP VEIN THROMBOSIS
     Dosage: INITIALLY 15 MG TWICE DAILY AND 20 MG ONCE DAILY
     Route: 048
     Dates: start: 20130322, end: 20140513
  5. XARELTO [Suspect]
     Active Substance: RIVAROXABAN
     Indication: CEREBROVASCULAR ACCIDENT PROPHYLAXIS
     Dosage: INITIALLY 15 MG TWICE DAILY AND 20 MG ONCE DAILY
     Route: 048
     Dates: start: 20130322, end: 20140513

REACTIONS (2)
  - Upper gastrointestinal haemorrhage [Recovered/Resolved]
  - Drug dose omission [Unknown]

NARRATIVE: CASE EVENT DATE: 201403
